FAERS Safety Report 5976633-8 (Version None)
Quarter: 2008Q4

REPORT INFORMATION
  Report Type: 
  Country: None (occurrence: None)
  Receive Date: 20081201
  Receipt Date: 20081201
  Transmission Date: 20090506
  Serious: Yes (Life-Threatening, Hospitalization, Other)
  Sender: FDA-Public Use
  Company Number: None

PATIENT
  Age: 62 Year
  Sex: Male

DRUGS (3)
  1. TRIMETHOPRIM-SULFAMETHOXAZOLE [Suspect]
     Indication: WOUND INFECTION
     Dosage: 1 TAB BID PO
     Route: 048
     Dates: start: 20080924, end: 20081015
  2. LISINOPRIL [Suspect]
     Indication: DIABETES MELLITUS
     Dosage: 60 MG EVERY DAY PO
     Route: 048
     Dates: start: 20040129, end: 20081015
  3. LISINOPRIL [Suspect]
     Indication: HYPERTENSION
     Dosage: 60 MG EVERY DAY PO
     Route: 048
     Dates: start: 20040129, end: 20081015

REACTIONS (2)
  - HYPERKALAEMIA [None]
  - RENAL FAILURE ACUTE [None]
